FAERS Safety Report 4305457-2 (Version None)
Quarter: 2004Q1

REPORT INFORMATION
  Report Type: 
  Country: None (occurrence: None)
  Receive Date: 20040226
  Receipt Date: 20040206
  Transmission Date: 20041129
  Serious: Yes (Hospitalization)
  Sender: FDA-Public Use
  Company Number: US-ROCHE-358498

PATIENT
  Age: 38 Year
  Sex: Female
  Weight: 50.8 kg

DRUGS (2)
  1. ACCUTANE [Suspect]
     Indication: DRUG USE FOR UNKNOWN INDICATION
     Route: 048
     Dates: start: 20020815, end: 20030104
  2. CONTRACEPTIVE INJECTABLE [Concomitant]
     Route: 030

REACTIONS (1)
  - MENSTRUAL DISORDER [None]
